FAERS Safety Report 10575312 (Version 1)
Quarter: 2014Q4

REPORT INFORMATION
  Report Type: Spontaneous
  Country: JP (occurrence: None)
  Receive Date: 20141107
  Receipt Date: 20141107
  Transmission Date: 20150529
  Serious: Yes (Other)
  Sender: FDA-Public Use
  Company Number: COR_00142_2014

PATIENT
  Sex: Male

DRUGS (5)
  1. CARBOPLATIN (CARBOPLATIN) [Suspect]
     Active Substance: CARBOPLATIN
     Indication: TESTIS CANCER
     Dosage: TWO CYCLES
  2. BLEOMYCIN [Suspect]
     Active Substance: BLEOMYCIN SULFATE
     Indication: TESTIS CANCER
     Dosage: PER DAY ON DAYS 1, 8 AND 15, 7 CYCLES
     Route: 042
  3. CISPLATIN (CISPLATIN) [Suspect]
     Active Substance: CISPLATIN
     Indication: TESTIS CANCER
     Dosage: PER DAY, FROM DAYS 1 TO 5, 7 CYCLES
     Route: 042
  4. CYCLOPHOSPHAMIDE (CYCLOPHOSPHAMIDE) [Suspect]
     Active Substance: CYCLOPHOSPHAMIDE
     Indication: TESTIS CANCER
     Dosage: TWO CYCLES
  5. ETOPOSIDE (ETOPOSIDE) [Suspect]
     Active Substance: ETOPOSIDE
     Indication: TESTIS CANCER
     Dosage: [PER DAY FROM DAYS 1 TO 5, 7 CYCLES]
     Route: 042

REACTIONS (1)
  - Azoospermia [None]
